FAERS Safety Report 13140449 (Version 1)
Quarter: 2017Q1

REPORT INFORMATION
  Report Type: Report from Study
  Country: GB (occurrence: GB)
  Receive Date: 20170123
  Receipt Date: 20170123
  Transmission Date: 20170428
  Serious: No
  Sender: FDA-Public Use
  Company Number: GB-JNJFOC-20161008357

PATIENT
  Age: 56 Year
  Sex: Male

DRUGS (1)
  1. STELARA [Suspect]
     Active Substance: USTEKINUMAB
     Indication: PSORIATIC ARTHROPATHY
     Route: 058
     Dates: start: 20160909

REACTIONS (3)
  - Hypersomnia [Unknown]
  - Fatigue [Unknown]
  - Night sweats [Unknown]

NARRATIVE: CASE EVENT DATE: 20161006
